FAERS Safety Report 7162706-3 (Version None)
Quarter: 2010Q4

REPORT INFORMATION
  Report Type: 
  Country: None (occurrence: None)
  Receive Date: 20101215
  Receipt Date: 20091210
  Transmission Date: 20110411
  Serious: Yes (Death, Hospitalization, Other)
  Sender: FDA-Public Use
  Company Number: GB-PFIZER INC-2009160320

PATIENT
  Age: 75 Year
  Sex: Male

DRUGS (9)
  1. CLINDAMYCIN HCL [Suspect]
     Indication: SKIN ULCER
  2. VILDAGLIPTIN [Suspect]
     Indication: TYPE 2 DIABETES MELLITUS
     Dosage: 50 MG, 2X/DAY
     Route: 048
     Dates: start: 20081211, end: 20081219
  3. ASPIRIN [Concomitant]
     Route: 048
  4. CLARITHROMYCIN [Concomitant]
  5. CARBIMAZOLE [Concomitant]
     Route: 048
     Dates: start: 20081220
  6. ALL OTHER THERAPEUTIC PRODUCTS [Concomitant]
  7. METFORMIN HYDROCHLORIDE [Concomitant]
  8. ROSUVASTATIN [Concomitant]
     Route: 048
  9. GLICLAZIDE [Concomitant]

REACTIONS (5)
  - CARDIAC ARREST [None]
  - HYPERSENSITIVITY [None]
  - LETHARGY [None]
  - RENAL FAILURE ACUTE [None]
  - SWELLING FACE [None]
